FAERS Safety Report 10926008 (Version 1)
Quarter: 2015Q1

REPORT INFORMATION
  Report Type: Spontaneous
  Country: US (occurrence: None)
  Receive Date: 20150316
  Receipt Date: 20150316
  Transmission Date: 20150721
  Serious: Yes (Hospitalization)
  Sender: FDA-Public Use
  Company Number: None

PATIENT
  Age: 63 Year
  Sex: Male
  Weight: 93.17 kg

DRUGS (15)
  1. LOPERAMIDE HCL [Concomitant]
     Active Substance: LOPERAMIDE HYDROCHLORIDE
  2. OXALIPLATIN. [Concomitant]
     Active Substance: OXALIPLATIN
  3. MAGNESIUM OXIDE. [Concomitant]
     Active Substance: MAGNESIUM OXIDE
  4. FOLFIRINOX (IRINOTECAN) [Concomitant]
  5. LIDOCAINE-PRILOCAINE [Concomitant]
     Active Substance: LIDOCAINE\PRILOCAINE
  6. PF-04136309 [Suspect]
     Active Substance: INVESTIGATIONAL PRODUCT
     Indication: PANCREATIC CARCINOMA
     Dosage: 375 MG BID C1D1-CONT
  7. CRESON [Concomitant]
  8. MORPHINE SULFATE. [Concomitant]
     Active Substance: MORPHINE SULFATE
  9. PROCHLORPERAZINE MALEATE (COMPAZINE) [Concomitant]
  10. ALPRAZOLAM. [Concomitant]
     Active Substance: ALPRAZOLAM
  11. DXAMETHASONE [Concomitant]
  12. ONDASETRON HCL (ZOFRAN) [Concomitant]
  13. LEUCOVORIN [Concomitant]
     Active Substance: LEUCOVORIN
  14. FOLFIRINOX [Suspect]
     Active Substance: FLUOROURACIL\IRINOTECAN\LEUCOVORIN\OXALIPLATIN
     Indication: PANCREATIC CARCINOMA
     Dosage: EVERY TWO WEEKS C1D1-CONT
  15. LOMOTIL (DIPHENOXYLATE-ATROPINE) [Concomitant]

REACTIONS (7)
  - Portal vein stenosis [None]
  - Biliary dilatation [None]
  - Condition aggravated [None]
  - Nausea [None]
  - Abdominal pain [None]
  - Pancreatic mass [None]
  - Vomiting [None]

NARRATIVE: CASE EVENT DATE: 20150312
